FAERS Safety Report 9383159 (Version 2)
Quarter: 2013Q3

REPORT INFORMATION
  Report Type: Spontaneous
  Country: US (occurrence: US)
  Receive Date: 20130704
  Receipt Date: 20130722
  Transmission Date: 20140515
  Serious: Yes (Death)
  Sender: FDA-Public Use
  Company Number: US-BRISTOL-MYERS SQUIBB COMPANY-19060094

PATIENT
  Age: 62 Year
  Sex: Female

DRUGS (1)
  1. ABILIFY TABS 30 MG [Suspect]
     Indication: PSYCHOTIC DISORDER
     Route: 048
     Dates: end: 20130121

REACTIONS (1)
  - Death [Fatal]
